FAERS Safety Report 5675669-4 (Version None)
Quarter: 2008Q1

REPORT INFORMATION
  Report Type: 
  Country: None (occurrence: None)
  Receive Date: 20080321
  Receipt Date: 20080314
  Transmission Date: 20080703
  Serious: Yes (Hospitalization)
  Sender: FDA-Public Use
  Company Number: PHHO2008PL03596

PATIENT
  Age: 55 Year
  Sex: Male
  Weight: 68.6 kg

DRUGS (2)
  1. MYCOPHENOLIC ACID [Suspect]
     Indication: RENAL TRANSPLANT
     Dosage: 1080 MG, BID
     Route: 048
     Dates: start: 20080201, end: 20080306
  2. MYCOPHENOLIC ACID [Suspect]
     Dosage: 360 MG, BID
     Route: 048
     Dates: start: 20080312

REACTIONS (5)
  - ABDOMINAL PAIN LOWER [None]
  - BLOOD CREATININE INCREASED [None]
  - FLATULENCE [None]
  - GASTRITIS [None]
  - OESOPHAGITIS [None]
